FAERS Safety Report 19545155 (Version 4)
Quarter: 2021Q4

REPORT INFORMATION
  Report Type: Report from Study
  Country: US (occurrence: US)
  Receive Date: 20210713
  Receipt Date: 20211123
  Transmission Date: 20220304
  Serious: No
  Sender: FDA-Public Use
  Company Number: NVSC2021US149422

PATIENT
  Sex: Female

DRUGS (1)
  1. ENTRESTO [Suspect]
     Active Substance: SACUBITRIL\VALSARTAN
     Indication: Product used for unknown indication
     Dosage: UNK
     Route: 065

REACTIONS (11)
  - Weight loss poor [Unknown]
  - Dry mouth [Unknown]
  - Migraine [Unknown]
  - Dyspnoea [Unknown]
  - Illness [Unknown]
  - Throat clearing [Unknown]
  - Nasal congestion [Unknown]
  - Somnolence [Unknown]
  - Productive cough [Unknown]
  - Asthenia [Unknown]
  - Product dose omission issue [Unknown]
